FAERS Safety Report 23996271 (Version 1)
Quarter: 2024Q2

REPORT INFORMATION
  Report Type: Spontaneous
  Country: US (occurrence: None)
  Receive Date: 20240620
  Receipt Date: 20240620
  Transmission Date: 20240717
  Serious: Yes (Death)
  Sender: FDA-Public Use
  Company Number: None

PATIENT
  Age: 81 Year
  Sex: Male

DRUGS (1)
  1. ENBREL [Suspect]
     Active Substance: BENZYL ALCOHOL\ETANERCEPT
     Indication: Rheumatoid arthritis
     Dosage: 50MG ONCE WEEKLY SUBQ
     Route: 058
     Dates: start: 20240319

REACTIONS (2)
  - Neoplasm malignant [None]
  - Metastatic neoplasm [None]

NARRATIVE: CASE EVENT DATE: 20240608
